FAERS Safety Report 8911691 (Version 1)
Quarter: 2012Q4

REPORT INFORMATION
  Report Type: 
  Country: JP (occurrence: JP)
  Receive Date: 20121116
  Receipt Date: 20121116
  Transmission Date: 20130627
  Serious: Yes (Other)
  Sender: FDA-Public Use
  Company Number: JP-SANOFI-AVENTIS-2012SA082128

PATIENT
  Age: 68 Year
  Sex: Male

DRUGS (7)
  1. DOCETAXEL [Suspect]
     Indication: LUNG ADENOCARCINOMA STAGE IV
     Dosage: 9 courses
     Route: 065
     Dates: start: 201106
  2. CARBOPLATIN [Suspect]
     Indication: LUNG ADENOCARCINOMA STAGE IV
     Dosage: 2 course
     Route: 065
     Dates: start: 201001
  3. CISPLATIN [Suspect]
     Indication: LUNG ADENOCARCINOMA STAGE IV
     Dosage: 2 course
     Route: 065
     Dates: start: 200912
  4. PEMETREXED [Suspect]
     Indication: LUNG ADENOCARCINOMA STAGE IV
     Dosage: 2 course
     Route: 065
     Dates: start: 200912
  5. PEMETREXED [Suspect]
     Indication: LUNG ADENOCARCINOMA STAGE IV
     Dosage: 2 course
     Route: 065
     Dates: start: 201001
  6. GEFITINIB [Suspect]
     Indication: LUNG ADENOCARCINOMA STAGE IV
     Route: 065
     Dates: start: 201005
  7. THERAPEUTIC RADIOPHARMACEUTICALS [Concomitant]
     Indication: LUNG ADENOCARCINOMA STAGE IV
     Dosage: 30 gy/10 fractions
     Dates: start: 200911

REACTIONS (2)
  - Leukoencephalopathy [Unknown]
  - Cognitive disorder [Unknown]
